FAERS Safety Report 11008821 (Version 1)
Quarter: 2015Q2

REPORT INFORMATION
  Report Type: Spontaneous
  Country: US (occurrence: None)
  Receive Date: 20150408
  Receipt Date: 20150408
  Transmission Date: 20150821
  Serious: Yes (Hospitalization, Other)
  Sender: FDA-Public Use
  Company Number: US-TORRENT-00000921

PATIENT
  Sex: Female
  Weight: 47.63 kg

DRUGS (3)
  1. DIAZEPAM. [Concomitant]
     Active Substance: DIAZEPAM
  2. ZOVIRAX [Concomitant]
     Active Substance: ACYCLOVIR
  3. DULOXETINE DELAYED-RELEASE [Suspect]
     Active Substance: DULOXETINE
     Indication: PRODUCT USED FOR UNKNOWN INDICATION
     Dosage: INTIALLY SHE STARTED ON 20 MG QD/ THEN 40MG QD THEN 60 MG QD NOW SHE IS ON 60 MG QOD
     Dates: start: 20140115

REACTIONS (14)
  - Vision blurred [None]
  - Anger [None]
  - Suicidal ideation [None]
  - Weight decreased [None]
  - Mood swings [None]
  - Decreased appetite [None]
  - Retching [None]
  - Seizure [None]
  - Head injury [None]
  - Insomnia [None]
  - Nervous system disorder [None]
  - Drug withdrawal syndrome [None]
  - Nausea [None]
  - Drug effect decreased [None]
